FAERS Safety Report 9979582 (Version 1)
Quarter: 2014Q1

REPORT INFORMATION
  Report Type: Report from Study
  Country: US (occurrence: US)
  Receive Date: 20140306
  Receipt Date: 20140306
  Transmission Date: 20141002
  Serious: No
  Sender: FDA-Public Use
  Company Number: US-ABBVIE-13P-163-1171113-00

PATIENT
  Age: 70 Year
  Sex: Female

DRUGS (9)
  1. HUMIRA [Suspect]
     Indication: CROHN^S DISEASE
     Dosage: LOADING DOSE
     Dates: start: 20131108, end: 20131108
  2. HUMIRA [Suspect]
  3. COUMADIN [Concomitant]
     Indication: PULMONARY EMBOLISM
     Dates: start: 1993
  4. METOPROLOL [Concomitant]
     Indication: HYPERTENSION
  5. CLONAZEPAM [Concomitant]
     Indication: RESTLESS LEGS SYNDROME
     Dosage: AT NIGHT
  6. CALCIUM [Concomitant]
     Indication: PRODUCT USED FOR UNKNOWN INDICATION
  7. ASACOL [Concomitant]
     Indication: CROHN^S DISEASE
     Dosage: 2-400 MG FOUR TIMES DAILY
  8. BUDESONIDE [Concomitant]
     Indication: GASTROINTESTINAL DISORDER
  9. VITAMIN D [Concomitant]
     Indication: PRODUCT USED FOR UNKNOWN INDICATION

REACTIONS (1)
  - Injection site pain [Recovered/Resolved]
